FAERS Safety Report 7722473-9 (Version None)
Quarter: 2011Q3

REPORT INFORMATION
  Report Type: 
  Country: None (occurrence: None)
  Receive Date: 20110831
  Receipt Date: 20110629
  Transmission Date: 20111222
  Serious: Yes (Hospitalization)
  Sender: FDA-Public Use
  Company Number: CA-B.I. PHARMACEUTICALS,INC./RIDGEFIELD-2011-CN-00982CN

PATIENT
  Sex: Female

DRUGS (14)
  1. VITAMINE A [Concomitant]
     Dosage: 10000 2 CAPSULES BID
  2. PMS-CARDIVOL [Concomitant]
     Dosage: 25MG 1 1/2 TABLETS BID
  3. PRADAXA [Suspect]
     Dates: start: 20110501, end: 20110704
  4. APO-DOMPERIDO [Concomitant]
     Dosage: 10MG 1 TABLET 4 TIMES/DAY
  5. ELAVIL [Concomitant]
     Dosage: 25MG 1-2 TABLETS ONCE DAILY
  6. APO-LISINOPRIL [Concomitant]
     Dosage: 20MG 2 TABLETS ONCE DAILY
  7. NEXIUM [Concomitant]
     Dosage: 40 MG 1 TABLET BID
  8. EURO-CAL [Concomitant]
     Dosage: 500MG 2 TABLETS BID
  9. MIRAPEX [Suspect]
     Dosage: 1/4 -1/2 TABLET ONCE DAILY
  10. ASAPHEN [Concomitant]
     Dosage: 80MG 1 TABLET ONCE DAILY
  11. EURO-FERROUS SULFATE [Concomitant]
     Dosage: 300MG 2 TABLETS BID
  12. MULTI-VITAMINS [Concomitant]
     Dosage: 1 TABLET ONCE DAILY
  13. D-FORTE [Concomitant]
     Dosage: 50000 1 CAPSULE BID
  14. EURO-K [Concomitant]
     Dosage: 20 15000M 1 TABLET ONCE DAILY

REACTIONS (7)
  - ANAEMIA [None]
  - HEADACHE [None]
  - EYE DISORDER [None]
  - DIZZINESS [None]
  - NAUSEA [None]
  - ABNORMAL SENSATION IN EYE [None]
  - VOMITING [None]
